FAERS Safety Report 8786416 (Version 2)
Quarter: 2013Q1

REPORT INFORMATION
  Report Type: Spontaneous
  Country: DE (occurrence: JP)
  Receive Date: 20120914
  Receipt Date: 20130128
  Transmission Date: 20140127
  Serious: Yes (Hospitalization)
  Sender: FDA-Public Use
  Company Number: JP-FRI-1000038543

PATIENT
  Age: 92 Year
  Sex: Female

DRUGS (9)
  1. MEMANTINE [Suspect]
     Indication: DEMENTIA ALZHEIMER^S TYPE
     Dosage: 5 MG
     Route: 048
     Dates: start: 20120807, end: 20120816
  2. DONEPEZIL [Suspect]
     Indication: MEMORY IMPAIRMENT
     Dosage: 3 MG
     Dates: start: 20120730, end: 20120813
  3. FLUITRAN [Suspect]
     Indication: HYPERTENSION
     Dosage: 1 DF
     Dates: end: 20120812
  4. YOKUKAN-SAN [Suspect]
     Indication: DEMENTIA ALZHEIMER^S TYPE
     Dosage: 5 G
     Dates: start: 20120807, end: 20120817
  5. LIPOVAS [Concomitant]
     Indication: DYSLIPIDAEMIA
     Dosage: 5 MG
     Dates: end: 20120812
  6. DIOVAN [Concomitant]
     Indication: HYPERTENSION
     Dosage: 80 MG
     Dates: end: 20120812
  7. VOLTMIE [Concomitant]
     Indication: GASTRITIS
     Dosage: 6 DF
     Dates: end: 20120812
  8. CEREKINON [Concomitant]
     Indication: GASTRITIS
     Dosage: 9 DF
     Dates: end: 20120812
  9. ALUSA [Concomitant]
     Indication: GASTRITIS
     Dosage: 9 DF
     Dates: end: 20120812

REACTIONS (8)
  - Altered state of consciousness [Unknown]
  - Hyponatraemia [Unknown]
  - Decreased appetite [Unknown]
  - Gait disturbance [Unknown]
  - Muscle spasms [Unknown]
  - Hypokalaemia [Unknown]
  - Blood chloride decreased [Unknown]
  - Hypercreatinaemia [Unknown]
